FAERS Safety Report 8505145-2 (Version None)
Quarter: 2012Q3

REPORT INFORMATION
  Report Type: 
  Country: None (occurrence: None)
  Receive Date: 20120712
  Receipt Date: 20120709
  Transmission Date: 20120928
  Serious: Yes (Hospitalization)
  Sender: FDA-Public Use
  Company Number: IT-JNJFOC-20120400296

PATIENT
  Sex: Male
  Weight: 27.2 kg

DRUGS (4)
  1. MESALAMINE [Concomitant]
     Indication: CROHN'S DISEASE
     Route: 054
  2. REMICADE [Suspect]
     Route: 065
     Dates: start: 20120308
  3. ANTIBIOTIC, UNSPECIFIED [Concomitant]
     Indication: CROHN'S DISEASE
  4. REMICADE [Suspect]
     Indication: CROHN'S DISEASE
     Route: 065
     Dates: start: 20110405

REACTIONS (1)
  - CROHN'S DISEASE [None]
